FAERS Safety Report 10197377 (Version 1)
Quarter: 2014Q2

REPORT INFORMATION
  Report Type: Spontaneous
  Country: US (occurrence: None)
  Receive Date: 20140523
  Receipt Date: 20140523
  Transmission Date: 20141212
  Serious: No
  Sender: FDA-Public Use
  Company Number: None

PATIENT
  Age: 42 Year
  Sex: Female
  Weight: 92.53 kg

DRUGS (1)
  1. LATUDA 20 MG [Suspect]
     Indication: BIPOLAR I DISORDER
     Dosage: GREATER THAN 6 MONTHS, 1 PILL, ONCE DAILY, TAKEN BY MOUTH
     Route: 048

REACTIONS (1)
  - Orthostatic hypotension [None]
